FAERS Safety Report 7703421-4 (Version None)
Quarter: 2011Q3

REPORT INFORMATION
  Report Type: 
  Country: None (occurrence: None)
  Receive Date: 20110823
  Receipt Date: 20110823
  Transmission Date: 20111222
  Serious: No
  Sender: FDA-Public Use
  Company Number: None

PATIENT
  Age: 54 Year
  Sex: Female
  Weight: 72.574 kg

DRUGS (1)
  1. TOPIRAMATE [Suspect]
     Indication: MIGRAINE
     Dosage: 100 MG
     Route: 048
     Dates: start: 20110127, end: 20110210

REACTIONS (3)
  - PRODUCT SUBSTITUTION ISSUE [None]
  - NAUSEA [None]
  - DIZZINESS [None]
